FAERS Safety Report 5344126-7 (Version None)
Quarter: 2007Q2

REPORT INFORMATION
  Report Type: 
  Country: None (occurrence: None)
  Receive Date: 20070531
  Receipt Date: 20070531
  Transmission Date: 20071010
  Serious: Yes (Life-Threatening, Hospitalization, Disabling)
  Sender: FDA-Public Use
  Company Number: None

PATIENT
  Age: 85 Month
  Sex: Male
  Weight: 56.246 kg

DRUGS (1)
  1. LEVAQUIN [Suspect]
     Dosage: UNKNOWN
     Dates: start: 20070518, end: 20070525

REACTIONS (2)
  - HALLUCINATIONS, MIXED [None]
  - PSYCHOTIC DISORDER [None]
